FAERS Safety Report 7520444-9 (Version None)
Quarter: 2011Q2

REPORT INFORMATION
  Report Type: 
  Country: None (occurrence: None)
  Receive Date: 20110602
  Receipt Date: 20110526
  Transmission Date: 20111010
  Serious: Yes (Death)
  Sender: FDA-Public Use
  Company Number: JP-MERCK-1104USA00725

PATIENT
  Age: 43 Year
  Sex: Male

DRUGS (22)
  1. CATAPRES [Concomitant]
     Route: 048
     Dates: end: 20110415
  2. RENAGEL [Concomitant]
     Route: 048
     Dates: end: 20110423
  3. SODIUM CHLORIDE [Concomitant]
     Route: 042
     Dates: start: 20110420, end: 20110525
  4. BLOOD, PLASMA [Concomitant]
     Route: 065
     Dates: start: 20110422, end: 20110507
  5. ADALAT CC [Concomitant]
     Route: 048
  6. CALCIUM CARBONATE [Concomitant]
     Route: 048
     Dates: end: 20110422
  7. URSO 250 [Concomitant]
     Route: 048
     Dates: start: 20110421, end: 20110525
  8. LACTULOSE [Concomitant]
     Route: 048
     Dates: start: 20110421, end: 20110525
  9. FRAGMIN [Concomitant]
     Route: 042
  10. CALCICOL [Concomitant]
     Route: 042
     Dates: start: 20110422
  11. ASPIRIN [Concomitant]
     Route: 048
     Dates: end: 20110429
  12. ADALAT CC [Concomitant]
     Route: 048
     Dates: end: 20110510
  13. EURODIN [Concomitant]
     Route: 048
  14. KAYTWO [Concomitant]
     Route: 042
     Dates: start: 20110420, end: 20110525
  15. ALFAROL [Concomitant]
     Route: 048
  16. OLMESARTAN MEDOXOMIL [Concomitant]
     Route: 048
     Dates: end: 20110510
  17. NOROXIN [Suspect]
     Indication: PYREXIA
     Route: 048
     Dates: start: 20110305, end: 20110311
  18. NOROXIN [Suspect]
     Indication: ENTERITIS INFECTIOUS
     Route: 048
     Dates: start: 20110305, end: 20110311
  19. PURSENNID [Concomitant]
     Route: 048
  20. LASIX [Concomitant]
     Route: 048
  21. RABEPRAZOLE SODIUM [Concomitant]
     Route: 048
     Dates: start: 20110421, end: 20110525
  22. SCOPOLAMINE [Concomitant]
     Route: 048
     Dates: start: 20110421, end: 20110525

REACTIONS (1)
  - HEPATITIS FULMINANT [None]
